FAERS Safety Report 6927943-9 (Version None)
Quarter: 2010Q3

REPORT INFORMATION
  Report Type: 
  Country: None (occurrence: None)
  Receive Date: 20100817
  Receipt Date: 20100809
  Transmission Date: 20110219
  Serious: Yes (Hospitalization, Other)
  Sender: FDA-Public Use
  Company Number: US-ELI_LILLY_AND_COMPANY-US201002004007

PATIENT
  Sex: Female
  Weight: 99.773 kg

DRUGS (6)
  1. BYETTA [Suspect]
     Dosage: UNK, UNKNOWN
     Route: 065
     Dates: start: 20040101, end: 20060101
  2. NEXIUM [Concomitant]
  3. CLONOTEN [Concomitant]
  4. METO-TABLINEN [Concomitant]
  5. DILTIAZEM [Concomitant]
  6. AVANDIA [Concomitant]

REACTIONS (1)
  - PANCREATITIS [None]
